FAERS Safety Report 24012756 (Version 1)
Quarter: 2024Q2

REPORT INFORMATION
  Report Type: Spontaneous
  Country: IN (occurrence: IN)
  Receive Date: 20240626
  Receipt Date: 20240626
  Transmission Date: 20240716
  Serious: Yes (Hospitalization, Other)
  Sender: FDA-Public Use
  Company Number: None

PATIENT
  Age: 69 Year
  Sex: Male

DRUGS (3)
  1. QUETIAPINE FUMARATE [Suspect]
     Active Substance: QUETIAPINE FUMARATE
     Indication: Obsessive-compulsive disorder
     Dosage: 50 MG, ONCE PER DAY
     Route: 065
  2. CLOBAZAM [Suspect]
     Active Substance: CLOBAZAM
     Indication: Obsessive-compulsive disorder
     Dosage: 10 MG, 2 TIMES PER DAY (EVERY 12 HRS)
     Route: 065
  3. GLIMEPIRIDE;METFORMIN HYDROCHLORIDE;VOGLIBOSE [Concomitant]
     Indication: Type 2 diabetes mellitus
     Dosage: UNK UNK, 2 TIMES PER DAY (EVERY 12 HRS)
     Route: 065

REACTIONS (1)
  - Osmotic demyelination syndrome [Recovering/Resolving]
